FAERS Safety Report 4336025-4 (Version None)
Quarter: 2004Q2

REPORT INFORMATION
  Report Type: 
  Country: None (occurrence: None)
  Receive Date: 20040406
  Receipt Date: 20040323
  Transmission Date: 20050107
  Serious: Yes (Disabling)
  Sender: FDA-Public Use
  Company Number: 2004206036FR

PATIENT
  Age: 49 Year
  Sex: Male
  Weight: 72 kg

DRUGS (5)
  1. CYTARABINE [Suspect]
     Dosage: 1 G, 11 CYCLES, INTRATHECAL
     Route: 037
     Dates: start: 20030917, end: 20040116
  2. DEPO-MEDROL [Suspect]
     Dosage: 40 MG, 11 CYCLES, INTRATHECAL
     Route: 039
     Dates: start: 20030917, end: 20040116
  3. IMATINIB (IMATINIB) [Suspect]
     Dosage: 400 MG, BID, ORAL
     Route: 048
     Dates: start: 20030918, end: 20031102
  4. METHOTREXATE [Suspect]
     Dosage: 5 MG, 11 CYCLES, INTRATHECAL
     Route: 039
     Dates: start: 20030917, end: 20040116
  5. ONCOVIN [Suspect]
     Dosage: 2 MG, CYCLIC, UNK

REACTIONS (10)
  - ACTIVITIES OF DAILY LIVING IMPAIRED [None]
  - AREFLEXIA [None]
  - DYSSTASIA [None]
  - NEUROPATHY PERIPHERAL [None]
  - OEDEMA PERIPHERAL [None]
  - PAIN IN EXTREMITY [None]
  - POLYNEUROPATHY [None]
  - POSITIVE ROMBERGISM [None]
  - VERTIGO [None]
  - WEIGHT INCREASED [None]
